FAERS Safety Report 9369586 (Version 1)
Quarter: 2013Q2

REPORT INFORMATION
  Report Type: Spontaneous
  Country: US (occurrence: US)
  Receive Date: 20130626
  Receipt Date: 20130626
  Transmission Date: 20140414
  Serious: No
  Sender: FDA-Public Use
  Company Number: US-MYLANLABS-2012S1018694

PATIENT
  Age: 73 Year
  Sex: Female
  Weight: 69.85 kg

DRUGS (3)
  1. PERFOROMIST (FORMOTEROL FUMARATE) INHALATION SOLUTION [Suspect]
     Indication: ASTHMA
     Route: 055
     Dates: start: 20120905
  2. PERFOROMIST (FORMOTEROL FUMARATE) INHALATION SOLUTION [Suspect]
     Indication: OFF LABEL USE
     Route: 055
     Dates: start: 20120905
  3. PULMICORT [Concomitant]

REACTIONS (2)
  - Dysphagia [Not Recovered/Not Resolved]
  - Swelling face [Not Recovered/Not Resolved]
